FAERS Safety Report 19503787 (Version 1)
Quarter: 2021Q3

REPORT INFORMATION
  Report Type: Spontaneous
  Country: SE (occurrence: SE)
  Receive Date: 20210707
  Receipt Date: 20210707
  Transmission Date: 20211014
  Serious: Yes (Hospitalization, Other)
  Sender: FDA-Public Use
  Company Number: SE-GLAXOSMITHKLINE-SECH2021043500

PATIENT
  Age: 28 Year
  Sex: Female

DRUGS (5)
  1. LITHIONIT [Concomitant]
     Active Substance: LITHIUM SULFATE
     Indication: PRODUCT USED FOR UNKNOWN INDICATION
     Dosage: 4 DF, QD((STRENGTH 42 MG)
     Route: 065
  2. SERTRALINE [Suspect]
     Active Substance: SERTRALINE HYDROCHLORIDE
     Indication: PRODUCT USED FOR UNKNOWN INDICATION
     Dosage: 1.5 G(1.5 GRAMS FOR 5 DAYS)
     Route: 065
     Dates: start: 202106, end: 202106
  3. IPREN [Suspect]
     Active Substance: IBUPROFEN
     Indication: PRODUCT USED FOR UNKNOWN INDICATION
     Dosage: 12 G(FOR 5 DAYS)
     Route: 065
     Dates: start: 202106, end: 202106
  4. QUETIAPINE. [Suspect]
     Active Substance: QUETIAPINE
     Indication: PRODUCT USED FOR UNKNOWN INDICATION
     Dosage: 4.5 G(4.5 GRAMS FOR 5 DAYS)
     Route: 065
     Dates: start: 202106, end: 202106
  5. PARACETAMOL [Suspect]
     Active Substance: ACETAMINOPHEN
     Indication: PRODUCT USED FOR UNKNOWN INDICATION
     Dosage: 10 G(10 GRAMS FOR 5 DAYS)
     Route: 065
     Dates: start: 202106, end: 202106

REACTIONS (7)
  - Acute kidney injury [Recovering/Resolving]
  - Intentional self-injury [Recovering/Resolving]
  - Liver injury [Recovering/Resolving]
  - Metabolic alkalosis [Recovering/Resolving]
  - Vomiting [Recovering/Resolving]
  - Toxicity to various agents [Recovering/Resolving]
  - Hypokalaemia [Recovering/Resolving]

NARRATIVE: CASE EVENT DATE: 202106
